FAERS Safety Report 16965860 (Version 3)
Quarter: 2019Q4

REPORT INFORMATION
  Report Type: Spontaneous
  Country: US (occurrence: US)
  Receive Date: 20191028
  Receipt Date: 20191113
  Transmission Date: 20200122
  Serious: Yes (Hospitalization)
  Sender: FDA-Public Use
  Company Number: US-PFIZER INC-2019465945

PATIENT
  Age: 8 Day

DRUGS (2)
  1. DEXTROSE. [Suspect]
     Active Substance: DEXTROSE
     Indication: PARENTERAL NUTRITION
     Dosage: 7%, 8% DEXTROSE IN BAG
     Route: 042
     Dates: start: 20191015, end: 20191015
  2. DEXTROSE. [Suspect]
     Active Substance: DEXTROSE
     Dosage: UNK
     Route: 042
     Dates: start: 20191015, end: 20191015

REACTIONS (2)
  - Drug ineffective [Recovered/Resolved]
  - Blood glucose decreased [Recovered/Resolved]

NARRATIVE: CASE EVENT DATE: 20191015
